FAERS Safety Report 24233207 (Version 1)
Quarter: 2024Q3

REPORT INFORMATION
  Report Type: Spontaneous
  Country: ES (occurrence: ES)
  Receive Date: 20240821
  Receipt Date: 20240821
  Transmission Date: 20241017
  Serious: Yes (Other)
  Sender: GLAND PHARMA
  Company Number: ES-GLANDPHARMA-ES-2024GLNLIT00642

PATIENT
  Age: 3 Year
  Sex: Male

DRUGS (2)
  1. MELPHALAN HYDROCHLORIDE [Suspect]
     Active Substance: MELPHALAN\MELPHALAN HYDROCHLORIDE
     Indication: Retinoblastoma
     Route: 035
  2. TOPOTECAN [Concomitant]
     Active Substance: TOPOTECAN HYDROCHLORIDE
     Indication: Retinoblastoma
     Route: 035

REACTIONS (10)
  - Retinal haemorrhage [Recovered/Resolved]
  - Retinopathy [Recovered/Resolved]
  - Choroidal detachment [Recovered/Resolved]
  - Atrophy of globe [Recovered/Resolved]
  - Lenticular pigmentation [Recovered/Resolved]
  - Lens dislocation [Recovered/Resolved]
  - Toxicity to various agents [Recovered/Resolved]
  - Iris discolouration [Recovered/Resolved]
  - Vitreous floaters [Recovered/Resolved]
  - Product use in unapproved indication [Unknown]
